FAERS Safety Report 14541798 (Version 1)
Quarter: 2018Q1

REPORT INFORMATION
  Report Type: Spontaneous
  Country: US (occurrence: US)
  Receive Date: 20180216
  Receipt Date: 20180216
  Transmission Date: 20180509
  Serious: Yes (Other)
  Sender: FDA-Public Use
  Company Number: None

PATIENT
  Age: 68 Year
  Sex: Female
  Weight: 70.31 kg

DRUGS (6)
  1. TAT [Concomitant]
  2. TRULANCE [Suspect]
     Active Substance: PLECANATIDE
     Indication: CONSTIPATION
     Dosage: ONE DAILY BEDTIME MONTH OF 4:30PM
     Dates: start: 20180101, end: 20180101
  3. LIPITOR [Concomitant]
     Active Substance: ATORVASTATIN CALCIUM
  4. BENFIBER [Concomitant]
  5. MULTIVITS [Concomitant]
  6. MIRLX [Concomitant]

REACTIONS (1)
  - Pain [None]

NARRATIVE: CASE EVENT DATE: 20180101
